FAERS Safety Report 12773700 (Version 1)
Quarter: 2016Q3

REPORT INFORMATION
  Report Type: Spontaneous
  Country: US (occurrence: US)
  Receive Date: 20160923
  Receipt Date: 20160923
  Transmission Date: 20161109
  Serious: No
  Sender: FDA-Public Use
  Company Number: PHEH2016US023326

PATIENT
  Sex: Male

DRUGS (1)
  1. COSENTYX [Suspect]
     Active Substance: SECUKINUMAB
     Indication: PRODUCT USED FOR UNKNOWN INDICATION
     Dosage: UNK UNK, QMO (EVERY 4 WEEKS)
     Route: 065

REACTIONS (6)
  - Arthralgia [Unknown]
  - Headache [Unknown]
  - Abasia [Unknown]
  - Skin haemorrhage [Unknown]
  - Gout [Unknown]
  - Pyrexia [Recovered/Resolved]
